FAERS Safety Report 24659461 (Version 1)
Quarter: 2024Q4

REPORT INFORMATION
  Report Type: Spontaneous
  Country: HR (occurrence: HR)
  Receive Date: 20241125
  Receipt Date: 20241125
  Transmission Date: 20250114
  Serious: Yes (Hospitalization, Other)
  Sender: PFIZER
  Company Number: HR-ROCHE-10000131912

PATIENT
  Age: 4 Decade
  Sex: Male

DRUGS (6)
  1. RITUXIMAB [Suspect]
     Active Substance: RITUXIMAB
     Indication: Antisynthetase syndrome
     Dosage: 2X1 GRAM/14 DAYS
     Dates: start: 2021
  2. RITUXIMAB [Suspect]
     Active Substance: RITUXIMAB
     Indication: Myositis
  3. MYCOPHENOLATE MOFETIL [Suspect]
     Active Substance: MYCOPHENOLATE MOFETIL
     Indication: Antisynthetase syndrome
     Dosage: UNK
     Dates: start: 2021
  4. MYCOPHENOLATE MOFETIL [Suspect]
     Active Substance: MYCOPHENOLATE MOFETIL
     Indication: Myositis
     Dosage: UP TO 3 GRAMS PER DAY
  5. HUMAN IMMUNOGLOBULIN G [Concomitant]
     Active Substance: HUMAN IMMUNOGLOBULIN G
     Indication: Antisynthetase syndrome
     Dosage: IN AN IMMUNOMODULATORY DOSE
     Dates: start: 2021
  6. HUMAN IMMUNOGLOBULIN G [Concomitant]
     Active Substance: HUMAN IMMUNOGLOBULIN G
     Indication: Myositis

REACTIONS (7)
  - Salmonellosis [Recovered/Resolved]
  - Pneumocystis jirovecii infection [Unknown]
  - Pulmonary alveolar haemorrhage [Unknown]
  - Secondary immunodeficiency [Unknown]
  - JC virus infection [Unknown]
  - Herpes zoster [Unknown]
  - Off label use [Unknown]

NARRATIVE: CASE EVENT DATE: 20210101
